FAERS Safety Report 8473245-1 (Version None)
Quarter: 2012Q2

REPORT INFORMATION
  Report Type: 
  Country: None (occurrence: None)
  Receive Date: 20120627
  Receipt Date: 20120622
  Transmission Date: 20120825
  Serious: Yes (Other)
  Sender: FDA-Public Use
  Company Number: JP-MERCK-1206USA04426

PATIENT
  Age: 67 Year
  Sex: Female

DRUGS (5)
  1. DECADRON [Concomitant]
     Route: 065
     Dates: start: 20120220, end: 20120220
  2. ALOXI [Concomitant]
     Route: 065
     Dates: start: 20120220, end: 20120220
  3. EPIRUBICIN HYDROCHLORIDE [Concomitant]
     Route: 065
     Dates: start: 20120220, end: 20120220
  4. CYCLOPHOSPHAMIDE [Concomitant]
     Route: 065
     Dates: start: 20120220, end: 20120220
  5. FOSAPREPITANT DIMEGLUMINE [Suspect]
     Indication: PROPHYLAXIS OF NAUSEA AND VOMITING
     Route: 042
     Dates: start: 20120220, end: 20120220

REACTIONS (2)
  - INJECTION SITE ERYTHEMA [None]
  - INJECTION SITE SWELLING [None]
